FAERS Safety Report 7735596-5 (Version None)
Quarter: 2011Q3

REPORT INFORMATION
  Report Type: 
  Country: None (occurrence: None)
  Receive Date: 20110907
  Receipt Date: 20110906
  Transmission Date: 20111222
  Serious: Yes (Disabling)
  Sender: FDA-Public Use
  Company Number: AU-MERCK-1108USA01812

PATIENT
  Age: 59 Year
  Sex: Male

DRUGS (6)
  1. ISENTRESS [Suspect]
     Indication: HIV INFECTION
     Route: 048
     Dates: start: 20100901, end: 20100914
  2. ATAZANAVIR [Concomitant]
     Indication: HIV INFECTION
     Route: 065
     Dates: start: 20070101
  3. TENOFOVIR [Concomitant]
     Indication: HIV INFECTION
     Route: 065
     Dates: start: 20070101
  4. AMITRIPTYLINE HYDROCHLORIDE [Concomitant]
     Indication: DEPRESSION
     Route: 065
  5. VENLAFAXINE HYDROCHLORIDE [Concomitant]
     Indication: DEPRESSION
     Route: 065
  6. CLOPIDOGREL [Concomitant]
     Indication: CEREBROVASCULAR ACCIDENT PROPHYLAXIS
     Route: 065

REACTIONS (3)
  - CONJUNCTIVITIS [None]
  - RASH [None]
  - INFLAMMATION [None]
